FAERS Safety Report 7790985-8 (Version None)
Quarter: 2011Q4

REPORT INFORMATION
  Report Type: 
  Country: None (occurrence: None)
  Receive Date: 20111002
  Receipt Date: 20110927
  Transmission Date: 20120403
  Serious: Yes (Death, Hospitalization)
  Sender: FDA-Public Use
  Company Number: PHHY2010MX84656

PATIENT
  Sex: Female

DRUGS (3)
  1. DICLOMETAZONE [Concomitant]
     Dosage: 50 MG, UNK
  2. ONBREZ [Suspect]
     Dosage: 150 UG, 1 APPLICATION DAILY
     Dates: start: 20101025, end: 20101029
  3. SPIRIVA [Concomitant]
     Dosage: 10 MG, UNK

REACTIONS (4)
  - PULMONARY FIBROSIS [None]
  - ERYTHEMA [None]
  - BLOOD PRESSURE INCREASED [None]
  - URINARY TRACT INFECTION [None]
